FAERS Safety Report 4694853-X (Version None)
Quarter: 2005Q2

REPORT INFORMATION
  Report Type: 
  Country: None (occurrence: None)
  Receive Date: 20050620
  Receipt Date: 20050609
  Transmission Date: 20051028
  Serious: Yes (Hospitalization)
  Sender: FDA-Public Use
  Company Number: FR-BRISTOL-MYERS SQUIBB COMPANY-12998993

PATIENT
  Age: 51 Year
  Sex: Male

DRUGS (5)
  1. ELISOR TABS 20 MG [Suspect]
     Route: 048
  2. TAREG [Suspect]
     Route: 048
  3. ZYLORIC [Suspect]
     Route: 048
  4. NEORAL [Suspect]
     Route: 048
  5. CELLCEPT [Suspect]
     Route: 048

REACTIONS (2)
  - BLOOD CREATININE INCREASED [None]
  - NEPHROPATHY [None]
